FAERS Safety Report 5191266-1 (Version None)
Quarter: 2006Q4

REPORT INFORMATION
  Report Type: 
  Country: None (occurrence: None)
  Receive Date: 20061219
  Receipt Date: 20061219
  Transmission Date: 20070319
  Serious: Yes (Other)
  Sender: FDA-Public Use
  Company Number: None

PATIENT
  Sex: Female

DRUGS (1)
  1. IMITREX [Suspect]
     Indication: MIGRAINE
     Dosage: 50 MG ONE TIME PO
     Route: 048
     Dates: start: 20061216, end: 20061216

REACTIONS (3)
  - APHASIA [None]
  - RASH [None]
  - STARING [None]
